FAERS Safety Report 22955213 (Version 2)
Quarter: 2023Q4

REPORT INFORMATION
  Report Type: Spontaneous
  Country: CN (occurrence: CN)
  Receive Date: 20230918
  Receipt Date: 20231002
  Transmission Date: 20240109
  Serious: Yes (Other)
  Sender: FDA-Public Use
  Company Number: CN-PFIZER INC-PV202300155352

PATIENT
  Age: 25 Year
  Sex: Female
  Weight: 54.5 kg

DRUGS (3)
  1. METHOTREXATE SODIUM [Suspect]
     Active Substance: METHOTREXATE SODIUM
     Indication: Choriocarcinoma
     Dosage: 150 MG, 1X/DAY
     Route: 041
     Dates: start: 20230821, end: 20230821
  2. METHOTREXATE SODIUM [Suspect]
     Active Substance: METHOTREXATE SODIUM
     Dosage: 150 MG, 1X/DAY
     Route: 041
     Dates: start: 20230824, end: 20230824
  3. METHOTREXATE SODIUM [Suspect]
     Active Substance: METHOTREXATE SODIUM
     Dosage: 150 MG, 1X/DAY
     Route: 042
     Dates: start: 20230827, end: 20230827

REACTIONS (6)
  - Myelosuppression [Recovering/Resolving]
  - Liver injury [Recovering/Resolving]
  - Renal disorder [Recovering/Resolving]
  - Mouth ulceration [Recovering/Resolving]
  - Nausea [Recovering/Resolving]
  - Vomiting [Recovering/Resolving]

NARRATIVE: CASE EVENT DATE: 20230828
